FAERS Safety Report 25494488 (Version 1)
Quarter: 2025Q2

REPORT INFORMATION
  Report Type: Spontaneous
  Country: JP (occurrence: JP)
  Receive Date: 20250630
  Receipt Date: 20250630
  Transmission Date: 20250716
  Serious: Yes (Life-Threatening, Hospitalization, Other)
  Sender: EXELIXIS
  Company Number: JP-TAKEDA-2025TJP005830

PATIENT
  Age: 66 Year
  Sex: Male
  Weight: 54 kg

DRUGS (22)
  1. CABOMETYX [Suspect]
     Active Substance: CABOZANTINIB S-MALATE
     Indication: Renal cancer
     Dosage: 60 MILLIGRAM, QD
     Route: 048
     Dates: start: 20250411, end: 20250424
  2. CABOMETYX [Suspect]
     Active Substance: CABOZANTINIB S-MALATE
     Dosage: 20 MILLIGRAM, QD
     Route: 048
     Dates: start: 20250503, end: 20250516
  3. CABOMETYX [Suspect]
     Active Substance: CABOZANTINIB S-MALATE
     Dosage: 20 MILLIGRAM, QD
     Route: 048
  4. VONOPRAZAN FUMARATE [Concomitant]
     Active Substance: VONOPRAZAN FUMARATE
     Route: 065
  5. LEVOTHYROXINE SODIUM [Concomitant]
     Active Substance: LEVOTHYROXINE SODIUM
     Route: 065
  6. Montelukast od [Concomitant]
     Route: 065
  7. Bilanoa od [Concomitant]
     Route: 065
  8. HERBALS [Concomitant]
     Active Substance: HERBALS
     Route: 065
  9. AMBROXOL HYDROCHLORIDE [Concomitant]
     Active Substance: AMBROXOL HYDROCHLORIDE
     Route: 065
  10. PREDNISOLONE [Concomitant]
     Active Substance: PREDNISOLONE
     Route: 065
  11. ROXITHROMYCIN [Concomitant]
     Active Substance: ROXITHROMYCIN
     Route: 065
  12. DIETARY SUPPLEMENT\PROBIOTICS [Concomitant]
     Active Substance: DIETARY SUPPLEMENT\PROBIOTICS NOS
     Route: 065
  13. BREZTRI [Concomitant]
     Active Substance: BUDESONIDE\FORMOTEROL\GLYCOPYRROLATE
     Route: 065
  14. CLOPIDOGREL [Concomitant]
     Active Substance: CLOPIDOGREL BISULFATE
     Route: 065
  15. ESOMEPRAZOLE [Concomitant]
     Active Substance: ESOMEPRAZOLE
     Route: 065
  16. FEBUXOSTAT [Concomitant]
     Active Substance: FEBUXOSTAT
     Route: 065
  17. BISOPROLOL FUMARATE [Concomitant]
     Active Substance: BISOPROLOL FUMARATE
     Route: 065
  18. ENTRESTO [Concomitant]
     Active Substance: SACUBITRIL\VALSARTAN
     Route: 065
  19. DAPAGLIFLOZIN [Concomitant]
     Active Substance: DAPAGLIFLOZIN
     Route: 065
  20. AMLODIPINE [Concomitant]
     Active Substance: AMLODIPINE BESYLATE
     Route: 065
  21. FUROSEMIDE [Concomitant]
     Active Substance: FUROSEMIDE
     Route: 065
  22. Rosuvastatin feldsenf [Concomitant]
     Route: 065

REACTIONS (4)
  - Diarrhoea [Unknown]
  - Vomiting [Unknown]
  - Dehydration [Recovered/Resolved]
  - Nausea [Unknown]

NARRATIVE: CASE EVENT DATE: 20250418
